FAERS Safety Report 7640832-X (Version None)
Quarter: 2011Q3

REPORT INFORMATION
  Report Type: 
  Country: None (occurrence: None)
  Receive Date: 20110728
  Receipt Date: 20110413
  Transmission Date: 20111222
  Serious: No
  Sender: FDA-Public Use
  Company Number: US-MUTUAL PHARMACEUTICAL COMPANY, INC.-CLHC20110014

PATIENT
  Sex: Male
  Weight: 74.91 kg

DRUGS (10)
  1. PLAVIX [Concomitant]
     Indication: PERIPHERAL ARTERIAL OCCLUSIVE DISEASE
     Route: 048
  2. ASPIRIN [Concomitant]
     Indication: PERIPHERAL ARTERIAL OCCLUSIVE DISEASE
     Route: 048
  3. HYDROCHLOROTHIAZIDE [Concomitant]
     Indication: HYPERTENSION
     Route: 048
  4. LISINOPRIL [Concomitant]
     Indication: HYPERTENSION
     Route: 048
  5. COLCHICINE [Suspect]
     Indication: GOUT
     Route: 048
     Dates: start: 20000101, end: 20101201
  6. ZETIA [Concomitant]
     Indication: BLOOD CHOLESTEROL INCREASED
     Route: 048
  7. ALLOPURINOL [Concomitant]
     Indication: GOUT
     Route: 048
     Dates: start: 20110101, end: 20110201
  8. ALLOPURINOL [Concomitant]
     Route: 048
     Dates: start: 20110301
  9. COLCRYS [Suspect]
     Indication: GOUT
     Route: 048
     Dates: start: 20110101
  10. GLUCOSAMINE WITH CHONDROTIN 1500/1200 MG [Concomitant]
     Indication: ARTHROPATHY
     Route: 048

REACTIONS (1)
  - DIARRHOEA [None]
